FAERS Safety Report 25161523 (Version 3)
Quarter: 2025Q2

REPORT INFORMATION
  Report Type: Report from Study
  Country: CA (occurrence: CA)
  Receive Date: 20250404
  Receipt Date: 20250506
  Transmission Date: 20250717
  Serious: Yes (Other)
  Sender: TAKEDA
  Company Number: CA-TAKEDA-2025TUS033819

PATIENT
  Age: 33 Year
  Sex: Male

DRUGS (4)
  1. VEDOLIZUMAB [Suspect]
     Active Substance: VEDOLIZUMAB
     Indication: Colitis ulcerative
  2. VEDOLIZUMAB [Suspect]
     Active Substance: VEDOLIZUMAB
     Dosage: 300 MILLIGRAM, Q4WEEKS
     Dates: start: 20250430
  3. RINVOQ [Concomitant]
     Active Substance: UPADACITINIB
  4. IRON [Concomitant]
     Active Substance: IRON
     Indication: Supplementation therapy

REACTIONS (2)
  - Colitis ulcerative [Not Recovered/Not Resolved]
  - Off label use [Unknown]

NARRATIVE: CASE EVENT DATE: 20250430
